FAERS Safety Report 9557818 (Version 2)
Quarter: 2013Q3

REPORT INFORMATION
  Report Type: Report from Study
  Country: US (occurrence: US)
  Receive Date: 20130926
  Receipt Date: 20130930
  Transmission Date: 20140515
  Serious: Yes (Hospitalization)
  Sender: FDA-Public Use
  Company Number: US-JNJFOC-20130912128

PATIENT
  Age: 17 Year
  Sex: Male
  Weight: 69.9 kg

DRUGS (3)
  1. REMICADE [Suspect]
     Indication: INFLAMMATORY BOWEL DISEASE
     Route: 042
     Dates: start: 20090521, end: 20091214
  2. HUMIRA [Suspect]
     Indication: INFLAMMATORY BOWEL DISEASE
     Route: 065
     Dates: start: 20100211, end: 20130828
  3. METHOTREXATE [Concomitant]
     Route: 065

REACTIONS (1)
  - Infectious mononucleosis [Recovered/Resolved]
